FAERS Safety Report 4917656-7 (Version None)
Quarter: 2006Q1

REPORT INFORMATION
  Report Type: 
  Country: None (occurrence: None)
  Receive Date: 20060215
  Receipt Date: 20060203
  Transmission Date: 20060701
  Serious: Yes (Hospitalization)
  Sender: FDA-Public Use
  Company Number: 220838

PATIENT
  Age: 78 Year
  Sex: Male
  Weight: 84.2 kg

DRUGS (3)
  1. AVASTIN [Suspect]
     Indication: PANCREATIC CARCINOMA
     Dosage: 15 MG/KG, SINGLE, INTRAVENOUS
     Route: 042
     Dates: start: 20050427
  2. GEMCITABINE (GEMCITABINE HYDROCHLORIDE) [Suspect]
     Indication: PANCREATIC CARCINOMA
     Dosage: 1000 MG/M2, UNK, INTRAVENOUS
     Route: 042
     Dates: start: 20051221
  3. CAPECITABINE (CAPECITABINE) [Suspect]
     Indication: PANCREATIC CARCINOMA
     Dosage: 650 MG/M2, BID, ORAL
     Route: 048
     Dates: start: 20051224

REACTIONS (1)
  - PYREXIA [None]
